FAERS Safety Report 8308156-5 (Version None)
Quarter: 2012Q2

REPORT INFORMATION
  Report Type: 
  Country: None (occurrence: None)
  Receive Date: 20120424
  Receipt Date: 20120420
  Transmission Date: 20120825
  Serious: Yes (Other)
  Sender: FDA-Public Use
  Company Number: FR-ROCHE-1056043

PATIENT
  Age: 63 Year
  Sex: Male
  Weight: 80 kg

DRUGS (11)
  1. LASIX [Concomitant]
  2. RAMIPRIL [Concomitant]
     Indication: HYPERTENSION
     Route: 048
  3. AZATHIOPRINE [Suspect]
     Indication: RHEUMATOID ARTHRITIS
  4. PREDNISONE TAB [Concomitant]
     Indication: RHEUMATOID ARTHRITIS
     Route: 048
  5. COUMADIN [Concomitant]
     Indication: EMBOLISM VENOUS
     Route: 048
  6. BACTRIM [Suspect]
     Indication: ANTIFUNGAL PROPHYLAXIS
     Dates: start: 20090101, end: 20110901
  7. ARANESP [Concomitant]
     Indication: ANAEMIA
     Route: 058
  8. MABTHERA [Suspect]
     Indication: RHEUMATOID ARTHRITIS
     Dates: start: 20110501
  9. NEXIUM [Concomitant]
  10. FOLIC ACID [Concomitant]
  11. TOPLEXIL (FRANCE) [Concomitant]

REACTIONS (1)
  - AGRANULOCYTOSIS [None]
